FAERS Safety Report 24954789 (Version 1)
Quarter: 2025Q1

REPORT INFORMATION
  Report Type: Spontaneous
  Country: US (occurrence: None)
  Receive Date: 20250209
  Receipt Date: 20250209
  Transmission Date: 20250409
  Serious: Yes (Hospitalization, Disabling)
  Sender: FDA-CTU
  Company Number: None

PATIENT
  Sex: Male

DRUGS (1)
  1. MOUNJARO [Suspect]
     Active Substance: TIRZEPATIDE

REACTIONS (8)
  - Insomnia [None]
  - Mania [None]
  - Depression [None]
  - Bipolar disorder [None]
  - Drug ineffective [None]
  - Therapy cessation [None]
  - Impaired work ability [None]
  - Family stress [None]
